FAERS Safety Report 11217976 (Version 3)
Quarter: 2015Q3

REPORT INFORMATION
  Report Type: Spontaneous
  Country: FR (occurrence: FR)
  Receive Date: 20150625
  Receipt Date: 20150904
  Transmission Date: 20151125
  Serious: Yes (Other)
  Sender: FDA-Public Use
  Company Number: FR-009507513-1506FRA009183

PATIENT
  Age: 41 Year
  Sex: Female

DRUGS (2)
  1. NEXPLANON [Suspect]
     Active Substance: ETONOGESTREL
     Indication: CONTRACEPTION
     Dosage: UNK
     Route: 059
     Dates: start: 201202
  2. NEXPLANON [Suspect]
     Active Substance: ETONOGESTREL
     Dosage: NEW IMPLANT WITHOUT REMOVING THE OLD ONE
     Route: 059
     Dates: start: 20150618

REACTIONS (5)
  - Tendonitis [Unknown]
  - Incorrect drug administration duration [Unknown]
  - Movement disorder [Unknown]
  - Overdose [Unknown]
  - Complex regional pain syndrome [Unknown]

NARRATIVE: CASE EVENT DATE: 201502
